FAERS Safety Report 6435128-8 (Version None)
Quarter: 2009Q4

REPORT INFORMATION
  Report Type: 
  Country: None (occurrence: None)
  Receive Date: 20091110
  Receipt Date: 20091102
  Transmission Date: 20100525
  Serious: Yes (Hospitalization)
  Sender: FDA-Public Use
  Company Number: RO-ABBOTT-09P-135-0606525-00

PATIENT
  Age: 35 Year
  Sex: Male
  Weight: 100 kg

DRUGS (3)
  1. TARKA [Suspect]
     Indication: HYPERTENSION
     Route: 048
     Dates: start: 20081128, end: 20090511
  2. RILMENIDINA [Concomitant]
     Indication: HYPERTENSION
     Route: 048
     Dates: start: 20090220, end: 20090511
  3. ACETYLSALICYLIC ACID [Concomitant]
     Indication: HYPERTENSION
     Route: 048
     Dates: start: 20090629

REACTIONS (1)
  - RENAL NEOPLASM [None]
